FAERS Safety Report 16326260 (Version 2)
Quarter: 2019Q3

REPORT INFORMATION
  Report Type: Spontaneous
  Country: US (occurrence: US)
  Receive Date: 20190517
  Receipt Date: 20190710
  Transmission Date: 20191004
  Serious: Yes (Death, Hospitalization)
  Sender: FDA-Public Use
  Company Number: US-PFIZER INC-2019210104

PATIENT
  Age: 80 Year
  Sex: Male
  Weight: 95.24 kg

DRUGS (1)
  1. LYRICA [Suspect]
     Active Substance: PREGABALIN
     Indication: NEUROPATHY PERIPHERAL
     Dosage: 150 MG, 2X/DAY
     Route: 048

REACTIONS (3)
  - Cerebrovascular accident [Fatal]
  - Urinary tract infection [Fatal]
  - Atrial fibrillation [Fatal]
